FAERS Safety Report 15972529 (Version 1)
Quarter: 2019Q1

REPORT INFORMATION
  Report Type: Spontaneous
  Country: GB (occurrence: GB)
  Receive Date: 20190216
  Receipt Date: 20190216
  Transmission Date: 20190418
  Serious: Yes (Death, Other)
  Sender: FDA-Public Use
  Company Number: GB-TEVA-2019-GB-1012033

PATIENT
  Age: 66 Year
  Sex: Female

DRUGS (6)
  1. ASPIRIN. [Suspect]
     Active Substance: ASPIRIN
     Indication: PRODUCT USED FOR UNKNOWN INDICATION
     Route: 065
  2. CITALOPRAM [Suspect]
     Active Substance: CITALOPRAM HYDROBROMIDE
     Indication: PRODUCT USED FOR UNKNOWN INDICATION
     Route: 065
  3. ZISPIN [Suspect]
     Active Substance: MIRTAZAPINE
     Dosage: INCREASE IN DOSE IN 7 WEEKS
     Route: 065
  4. PRIADEL [Concomitant]
     Active Substance: LITHIUM
     Indication: PRODUCT USED FOR UNKNOWN INDICATION
  5. ZISPIN [Suspect]
     Active Substance: MIRTAZAPINE
     Indication: PRODUCT USED FOR UNKNOWN INDICATION
     Route: 065
  6. ZISPIN [Suspect]
     Active Substance: MIRTAZAPINE
     Route: 065

REACTIONS (7)
  - Agitation [Unknown]
  - Condition aggravated [Unknown]
  - Completed suicide [Fatal]
  - Confusional state [Unknown]
  - Anxiety [Unknown]
  - Histrionic personality disorder [Unknown]
  - Overdose [Unknown]
